FAERS Safety Report 8046129-0 (Version None)
Quarter: 2012Q1

REPORT INFORMATION
  Report Type: 
  Country: None (occurrence: None)
  Receive Date: 20120113
  Receipt Date: 20120109
  Transmission Date: 20120608
  Serious: No
  Sender: FDA-Public Use
  Company Number: US-PFIZER INC-2012006569

PATIENT
  Sex: Female
  Weight: 63.492 kg

DRUGS (3)
  1. ACETYLSALICYLIC ACID [Concomitant]
     Dosage: UNK
  2. REVATIO [Suspect]
     Indication: POSTOPERATIVE CARE
     Dosage: (TWO TABLETS OF 20MG)40 MG, 3X/DAY
     Route: 048
     Dates: start: 20111001
  3. LEVOTHYROXINE [Concomitant]
     Indication: THYROID DISORDER
     Dosage: 125 UG, 1X/DAY

REACTIONS (1)
  - VAGINAL DISCHARGE [None]
